FAERS Safety Report 18515966 (Version 2)
Quarter: 2020Q4

REPORT INFORMATION
  Report Type: Report from Study
  Country: US (occurrence: US)
  Receive Date: 20201118
  Receipt Date: 20201208
  Transmission Date: 20210114
  Serious: Yes (Other)
  Sender: FDA-Public Use
  Company Number: US-BIOGEN-2020BI00946267

PATIENT
  Sex: Male

DRUGS (3)
  1. TECFIDERA [Suspect]
     Active Substance: DIMETHYL FUMARATE
     Indication: MULTIPLE SCLEROSIS
     Route: 065
  2. TECFIDERA [Suspect]
     Active Substance: DIMETHYL FUMARATE
     Dosage: MAINTENANCE DOSE
     Route: 065
     Dates: start: 20141015
  3. VALIUM [Concomitant]
     Active Substance: DIAZEPAM
     Indication: RESTLESS LEGS SYNDROME
     Dosage: EVERY NIGHT
     Route: 065

REACTIONS (2)
  - Prostate cancer [Unknown]
  - Mobility decreased [Unknown]

NARRATIVE: CASE EVENT DATE: 2019
